FAERS Safety Report 7515489-9 (Version None)
Quarter: 2011Q2

REPORT INFORMATION
  Report Type: 
  Country: None (occurrence: None)
  Receive Date: 20110601
  Receipt Date: 20100625
  Transmission Date: 20111010
  Serious: No
  Sender: FDA-Public Use
  Company Number: US-PFIZER INC-2010079912

PATIENT
  Sex: Male

DRUGS (2)
  1. CHANTIX [Suspect]
     Dosage: UNK
     Route: 048
  2. METHADONE [Concomitant]
     Indication: DRUG DEPENDENCE
     Dosage: 80 TO 120 MG DAILY

REACTIONS (1)
  - DRUG SCREEN POSITIVE [None]
